FAERS Safety Report 7799282-8 (Version None)
Quarter: 2011Q4

REPORT INFORMATION
  Report Type: 
  Country: None (occurrence: None)
  Receive Date: 20111006
  Receipt Date: 20110923
  Transmission Date: 20120403
  Serious: Yes (Hospitalization)
  Sender: FDA-Public Use
  Company Number: IT-BAYER-2011-094579

PATIENT
  Age: 49 Year
  Sex: Female

DRUGS (3)
  1. NAPROXEN SODIUM [Suspect]
     Indication: NECK PAIN
     Dosage: 1 DF, QD
     Route: 048
     Dates: start: 20110913, end: 20110914
  2. DELORAZEPAM [Concomitant]
     Dosage: DAILY DOSE 15 GTT
  3. KETOPROFEN [Suspect]
     Indication: NECK PAIN
     Dosage: DAILY DOSE 3 DF
     Route: 048
     Dates: start: 20110913, end: 20110914

REACTIONS (2)
  - GASTRODUODENITIS [None]
  - MICROCYTIC ANAEMIA [None]
